FAERS Safety Report 10200138 (Version 1)
Quarter: 2014Q2

REPORT INFORMATION
  Report Type: Spontaneous
  Country: DE (occurrence: DE)
  Receive Date: 20140527
  Receipt Date: 20140527
  Transmission Date: 20141212
  Serious: Yes (Other)
  Sender: FDA-Public Use
  Company Number: DE-TEVA-484135GER

PATIENT
  Age: 28 Year
  Sex: Female
  Weight: 74 kg

DRUGS (5)
  1. LAMOTRIGIN [Suspect]
     Indication: EPILEPSY
     Dosage: 200 MILLIGRAM DAILY;
     Route: 064
     Dates: start: 20121208, end: 20130601
  2. FOLSAEURE [Concomitant]
     Indication: PROPHYLAXIS OF NEURAL TUBE DEFECT
     Dosage: 5 MILLIGRAM DAILY;
     Route: 064
     Dates: start: 20121208, end: 20130529
  3. PENHEXAL [Concomitant]
     Indication: RESPIRATORY TRACT INFECTION
     Route: 064
  4. MIFEGYNE [Concomitant]
     Indication: ABORTION INDUCED
     Route: 064
     Dates: start: 20130529, end: 20130529
  5. CYTOTEC [Concomitant]
     Indication: ABORTION INDUCED
     Route: 064
     Dates: start: 20130530, end: 20130530

REACTIONS (1)
  - Abortion induced [Unknown]
